FAERS Safety Report 4732911-1 (Version None)
Quarter: 2005Q3

REPORT INFORMATION
  Report Type: 
  Country: None (occurrence: None)
  Receive Date: 20050803
  Receipt Date: 20050516
  Transmission Date: 20060218
  Serious: No
  Sender: FDA-Public Use
  Company Number: US-GLAXOSMITHKLINE-A0558796A

PATIENT
  Age: 59 Year
  Sex: Female

DRUGS (3)
  1. AVANDAMET [Suspect]
     Dosage: 1TAB TWICE PER DAY
     Route: 048
     Dates: start: 20050301
  2. SEREVENT [Concomitant]
  3. UNKNOWN MEDICATION [Concomitant]
     Indication: LUNG DISORDER
     Route: 065

REACTIONS (2)
  - DEFAECATION URGENCY [None]
  - DIARRHOEA [None]
